FAERS Safety Report 6267013-9 (Version None)
Quarter: 2009Q3

REPORT INFORMATION
  Report Type: 
  Country: None (occurrence: None)
  Receive Date: 20090714
  Receipt Date: 20090707
  Transmission Date: 20100115
  Serious: Yes (Hospitalization)
  Sender: FDA-Public Use
  Company Number: US-AMGEN-QUU343601

PATIENT
  Sex: Male
  Weight: 69 kg

DRUGS (2)
  1. EPOGEN [Suspect]
     Indication: RENAL FAILURE CHRONIC
     Route: 042
     Dates: start: 20090122
  2. ARANESP [Suspect]
     Indication: DIALYSIS
     Route: 065
     Dates: start: 20090325, end: 20090329

REACTIONS (6)
  - ANAEMIA [None]
  - CARDIAC FAILURE CONGESTIVE [None]
  - CHRONIC OBSTRUCTIVE PULMONARY DISEASE [None]
  - DIVERTICULUM [None]
  - HAEMORRHOIDS [None]
  - HIATUS HERNIA [None]
